FAERS Safety Report 8206539-5 (Version None)
Quarter: 2012Q1

REPORT INFORMATION
  Report Type: 
  Country: None (occurrence: None)
  Receive Date: 20120313
  Receipt Date: 20120309
  Transmission Date: 20120608
  Serious: Yes (Disabling)
  Sender: FDA-Public Use
  Company Number: US-MERCK-1201USA01692

PATIENT
  Age: 50 Year
  Sex: Female

DRUGS (5)
  1. FOSAPREPITANT DIMEGLUMINE [Suspect]
     Route: 042
     Dates: start: 20110722
  2. DEXAMETHASONE [Concomitant]
     Route: 048
  3. FOSAPREPITANT DIMEGLUMINE [Suspect]
     Route: 042
     Dates: start: 20110701, end: 20110801
  4. TAXOTERE [Concomitant]
     Route: 065
  5. FOSAPREPITANT DIMEGLUMINE [Suspect]
     Indication: PROPHYLAXIS OF NAUSEA AND VOMITING
     Route: 042
     Dates: start: 20110701

REACTIONS (4)
  - VASCULAR COMPRESSION [None]
  - INFUSION SITE DISCOLOURATION [None]
  - PAIN [None]
  - BURNING SENSATION [None]
